FAERS Safety Report 24032863 (Version 1)
Quarter: 2024Q3

REPORT INFORMATION
  Report Type: Spontaneous
  Country: US (occurrence: US)
  Receive Date: 20240701
  Receipt Date: 20240701
  Transmission Date: 20241017
  Serious: Yes (Other)
  Sender: AMGEN
  Company Number: US-AMGEN-USASP2024128602

PATIENT
  Age: 68 Year
  Sex: Male

DRUGS (2)
  1. BEVACIZUMAB [Suspect]
     Active Substance: BEVACIZUMAB
     Indication: Hepatocellular carcinoma
     Dosage: 1400 MILLIGRAM, , 24 CYCLES
     Route: 065
  2. ATEZOLIZUMAB [Concomitant]
     Active Substance: ATEZOLIZUMAB
     Indication: Hepatocellular carcinoma
     Dosage: 1200 MILLIGRAM, 24 CYCLES
     Route: 065

REACTIONS (7)
  - Hepatocellular carcinoma [Unknown]
  - Chronic respiratory failure [Unknown]
  - Septic shock [Unknown]
  - Renal failure [Unknown]
  - Bacteraemia [Unknown]
  - Acute respiratory failure [Unknown]
  - Off label use [Unknown]
